FAERS Safety Report 11281089 (Version 4)
Quarter: 2015Q3

REPORT INFORMATION
  Report Type: Report from Study
  Country: US (occurrence: US)
  Receive Date: 20150717
  Receipt Date: 20150911
  Transmission Date: 20151125
  Serious: Yes (Hospitalization, Other)
  Sender: FDA-Public Use
  Company Number: US-009507513-1507USA007039

PATIENT
  Age: 64 Year
  Sex: Male
  Weight: 72.56 kg

DRUGS (23)
  1. ZOFRAN [Concomitant]
     Active Substance: ONDANSETRON HYDROCHLORIDE
     Indication: PROPHYLAXIS OF NAUSEA AND VOMITING
     Dosage: 8 MG, Q8H (PRN)
     Route: 048
     Dates: start: 20140721
  2. COMPAZINE [Concomitant]
     Active Substance: PROCHLORPERAZINE MALEATE
     Indication: NAUSEA
     Dosage: 10 MG Q6H, PRN
     Route: 048
     Dates: start: 20140811
  3. COLACE [Concomitant]
     Active Substance: DOCUSATE SODIUM
     Indication: CONSTIPATION
     Dosage: 100 MG, QD
     Route: 048
     Dates: start: 20140818
  4. TEMODAR [Suspect]
     Active Substance: TEMOZOLOMIDE
     Indication: GLIOBLASTOMA MULTIFORME
     Dosage: 75 MG/M2, QD, DAILY FOR 6 WEEKS
     Route: 048
     Dates: start: 20140727, end: 20140829
  5. ABT-414 [Suspect]
     Active Substance: INVESTIGATIONAL PRODUCT
     Indication: GLIOBLASTOMA MULTIFORME
     Dosage: 2 MG/KG, DAY 1 OF WEEKS 1,3 AND 5
     Route: 042
     Dates: start: 20140721, end: 20140818
  6. DEXAMETHASONE. [Concomitant]
     Active Substance: DEXAMETHASONE
     Dosage: BOTH EYES (2 DROPS, TID)
     Route: 047
     Dates: start: 20150616
  7. SENNA [Concomitant]
     Active Substance: SENNA LEAF\SENNOSIDES\SENNOSIDES A AND B
     Indication: CONSTIPATION
     Dosage: 15 MG, PRN
     Route: 048
     Dates: start: 20141104
  8. OMEGA-3 MARINE TRIGLYCERIDES [Concomitant]
     Active Substance: FISH OIL
     Indication: NUTRITIONAL SUPPLEMENTATION
     Dosage: 2 CAPSULE, BID
     Route: 048
     Dates: start: 20150402
  9. DEXAMETHASONE. [Concomitant]
     Active Substance: DEXAMETHASONE
     Indication: PROPHYLAXIS
     Dosage: BOTH EYES (2 DROPS, TID)
     Route: 047
     Dates: start: 20150602, end: 20150604
  10. HEMP [Concomitant]
     Active Substance: HEMP
     Indication: NAUSEA
     Dosage: 500 MG, BID
     Route: 048
     Dates: start: 20140812
  11. GINGER. [Concomitant]
     Active Substance: GINGER
     Indication: PROPHYLAXIS OF NAUSEA AND VOMITING
     Dosage: UNK, PRN
     Route: 048
     Dates: start: 20140804
  12. TEMODAR [Suspect]
     Active Substance: TEMOZOLOMIDE
     Dosage: 150 MG/M2, CYCLICAL,  DAYS 1-5 OF 28-DAY CYCLE
     Route: 048
     Dates: start: 20150402
  13. ABT-414 [Suspect]
     Active Substance: INVESTIGATIONAL PRODUCT
     Dosage: 1 MG/KG, DAYS 1 AND 15 OF 28-DAY CYCLE
     Route: 042
     Dates: start: 20141016
  14. TURMERIC [Concomitant]
     Active Substance: TURMERIC
     Indication: ANTIEMETIC SUPPORTIVE CARE
     Dosage: UNK, PRN
     Route: 048
     Dates: start: 20140804
  15. ALEVE [Concomitant]
     Active Substance: NAPROXEN SODIUM
     Indication: HEADACHE
     Dosage: 200 MG, PRN
     Route: 048
     Dates: start: 201506
  16. HEMP [Concomitant]
     Active Substance: HEMP
     Indication: ROUTINE HEALTH MAINTENANCE
  17. ARTIFICIAL TEARS (HYPROMELLOSE) [Concomitant]
     Indication: PROPHYLAXIS
     Dosage: UNK, PRN
     Route: 047
     Dates: start: 20140904
  18. TEMODAR [Suspect]
     Active Substance: TEMOZOLOMIDE
     Dosage: 200 MG/M2, CYCLICAL,  DAYS 1-5 OF 28-DAY CYCLE
     Route: 048
     Dates: start: 20141113, end: 20150203
  19. LORAZEPAM. [Concomitant]
     Active Substance: LORAZEPAM
     Indication: NAUSEA
     Dosage: 0.5 MG Q8H, PRN
     Route: 048
     Dates: start: 20140902
  20. SHARK LIVER OIL [Concomitant]
     Active Substance: SHARK LIVER OIL
     Indication: PLATELET DISORDER
     Dosage: 2000 MG, BID
     Route: 048
     Dates: start: 20150402
  21. TEMODAR [Suspect]
     Active Substance: TEMOZOLOMIDE
     Dosage: 150 MG/M2, QD, DAYS 1-5 OF 28-DAY CYCLE
     Dates: start: 20140929, end: 20141003
  22. DEXAMETHASONE. [Concomitant]
     Active Substance: DEXAMETHASONE
     Dosage: BOTH EYES (2 DROPS, TID)
     Route: 047
     Dates: start: 20150609, end: 20150611
  23. PROTEIN (UNSPECIFIED) [Concomitant]
     Indication: NUTRITIONAL SUPPLEMENTATION
     Dosage: 30 G, QD
     Route: 048
     Dates: start: 20140730

REACTIONS (1)
  - Seizure [Recovered/Resolved]

NARRATIVE: CASE EVENT DATE: 20150607
